FAERS Safety Report 8241504-3 (Version None)
Quarter: 2012Q1

REPORT INFORMATION
  Report Type: 
  Country: None (occurrence: None)
  Receive Date: 20120328
  Receipt Date: 20110810
  Transmission Date: 20120608
  Serious: No
  Sender: FDA-Public Use
  Company Number: US-COVIDIEN/TYCO HEALTHCARE/MALLINCKRODT-T201101589

PATIENT
  Age: 25 Year
  Sex: Female

DRUGS (3)
  1. METHADOSE [Suspect]
     Dosage: 20 MG, UNK
  2. METHADOSE [Suspect]
     Indication: DRUG DETOXIFICATION
     Dosage: 30 MG, UNK
  3. METHADOSE [Suspect]
     Dosage: 40 MG, UNK

REACTIONS (1)
  - HYPERSENSITIVITY [None]
